FAERS Safety Report 4283174-5 (Version None)
Quarter: 2004Q1

REPORT INFORMATION
  Report Type: 
  Country: None (occurrence: None)
  Receive Date: 20040130
  Receipt Date: 20040116
  Transmission Date: 20041129
  Serious: Yes (Death)
  Sender: FDA-Public Use
  Company Number: CHPA2004US00475

PATIENT
  Age: 26 Year
  Sex: Male

DRUGS (1)
  1. THERAFLU HOTLIQ MS ND (HLORCITRUS)PURPLE(NCH)(ACETAMINOPHEN(PARACETAMO [Suspect]
     Dates: start: 20040111

REACTIONS (2)
  - BLOOD DISORDER [None]
  - MYOCARDIAL INFARCTION [None]
